FAERS Safety Report 5362915-X (Version None)
Quarter: 2007Q2

REPORT INFORMATION
  Report Type: 
  Country: None (occurrence: None)
  Receive Date: 20070615
  Receipt Date: 20070604
  Transmission Date: 20071010
  Serious: Yes (Hospitalization, Other)
  Sender: FDA-Public Use
  Company Number: 2007US000274

PATIENT
  Age: 70 Year
  Sex: Male

DRUGS (11)
  1. PROGRAF [Suspect]
     Indication: PROPHYLAXIS AGAINST TRANSPLANT REJECTION
     Dosage: 2 MG, BID, ORAL
     Route: 048
     Dates: start: 20050119
  2. MYCOPHENOLATE MOFETIL [Suspect]
     Indication: PROPHYLAXIS AGAINST TRANSPLANT REJECTION
     Dosage: 1000 MG, BID, ORAL
     Route: 048
     Dates: start: 20050119, end: 20070130
  3. PREDNISONE TAB [Suspect]
     Indication: PROPHYLAXIS AGAINST TRANSPLANT REJECTION
     Dosage: 2.5 MG, UID/QD, ORAL
     Route: 048
     Dates: start: 20050122
  4. NYSTATIN [Concomitant]
  5. TOPROL-XL [Concomitant]
  6. CADUET (AMLODIPINE BESILATE, ATORVASTATIN CALCIUM) [Concomitant]
  7. VASOTEC [Concomitant]
  8. SYNTHROID [Concomitant]
  9. PROTONIX [Concomitant]
  10. LANTUS [Concomitant]
  11. INSULIN, REGULAR (INSULIN) [Concomitant]

REACTIONS (4)
  - LUNG ADENOCARCINOMA [None]
  - MENINGITIS CRYPTOCOCCAL [None]
  - NEUTROPENIA [None]
  - SHIFT TO THE LEFT [None]
